FAERS Safety Report 20649169 (Version 5)
Quarter: 2022Q3

REPORT INFORMATION
  Report Type: Spontaneous
  Country: US (occurrence: US)
  Receive Date: 20220329
  Receipt Date: 20220829
  Transmission Date: 20221026
  Serious: No
  Sender: FDA-Public Use
  Company Number: US-PFIZER INC-2021771330

PATIENT
  Age: 50 Year
  Sex: Female

DRUGS (2)
  1. IBRANCE [Suspect]
     Active Substance: PALBOCICLIB
     Indication: Breast cancer female
     Dosage: 125 MG, CYCLIC (ONCE DAILY FOR 21 DAYS)
     Route: 048
     Dates: start: 2020
  2. ANASTROZOLE [Concomitant]
     Active Substance: ANASTROZOLE
     Dosage: 1 MG

REACTIONS (19)
  - Product dose omission issue [Unknown]
  - Nightmare [Unknown]
  - Diarrhoea [Unknown]
  - Depressed mood [Unknown]
  - Decreased appetite [Unknown]
  - Migraine [Unknown]
  - Insomnia [Unknown]
  - Dark circles under eyes [Unknown]
  - Stomatitis [Unknown]
  - Aphthous ulcer [Unknown]
  - Skin lesion [Unknown]
  - Loss of libido [Unknown]
  - White blood cell count decreased [Unknown]
  - Pain [Unknown]
  - Food aversion [Unknown]
  - Muscle spasms [Unknown]
  - Anxiety [Unknown]
  - Headache [Unknown]
  - Therapy change [Unknown]
